FAERS Safety Report 9893166 (Version 1)
Quarter: 2014Q1

REPORT INFORMATION
  Report Type: Report from Study
  Country: US (occurrence: US)
  Receive Date: 20140213
  Receipt Date: 20140213
  Transmission Date: 20141002
  Serious: Yes (Other)
  Sender: FDA-Public Use
  Company Number: US-ROCHE-1322831

PATIENT
  Sex: Male
  Weight: 69.92 kg

DRUGS (18)
  1. AVASTIN [Suspect]
     Indication: COLON CANCER
     Dosage: 5MG/KG
     Route: 041
     Dates: start: 20110906
  2. AVASTIN [Suspect]
     Indication: METASTASES TO LIVER
  3. XELODA [Suspect]
     Indication: COLON CANCER
     Dosage: 7 DAYS ON 7 DAYS OFF
     Route: 048
     Dates: start: 20110906
  4. XELODA [Suspect]
     Indication: METASTASES TO LIVER
     Dosage: 7 DAYS ON 7 DAYS OFF
     Route: 048
  5. KYTRIL [Suspect]
     Indication: PRODUCT USED FOR UNKNOWN INDICATION
     Route: 040
     Dates: start: 20110906
  6. CATHFLO ACTIVASE [Suspect]
     Indication: PRODUCT USED FOR UNKNOWN INDICATION
     Dosage: MG/2ML
     Route: 065
     Dates: start: 20110906
  7. 5-FU [Concomitant]
     Route: 040
     Dates: start: 20110906
  8. 5-FU [Concomitant]
     Dosage: CIV OVER 46 HOURS, PUMP
     Route: 041
  9. ATROPINE [Concomitant]
     Dosage: MG/1ML
     Route: 042
  10. CALCIUM GLUCONATE [Concomitant]
     Dosage: GIVE PRE OXALIPLATIN
     Route: 041
     Dates: start: 20110906
  11. DECADRON [Concomitant]
     Route: 042
     Dates: start: 20110906
  12. EMEND [Concomitant]
     Route: 041
     Dates: start: 20110906
  13. ELOXATIN [Concomitant]
     Dosage: 85MG/M2
     Route: 041
     Dates: start: 20110906
  14. LEUCOVORIN [Concomitant]
     Dosage: 400MG/M2
     Route: 041
     Dates: start: 20110906
  15. LEUCOVORIN [Concomitant]
     Route: 048
  16. MAGNESIUM GLUCONATE [Concomitant]
     Dosage: PRE- OXALIPLATIN
     Route: 065
  17. NORMAL SALINE [Concomitant]
     Route: 042
  18. DEXTROSE [Concomitant]
     Route: 042

REACTIONS (5)
  - Thrombosis [Unknown]
  - Local swelling [Recovering/Resolving]
  - Dysphagia [Unknown]
  - Diarrhoea [Unknown]
  - Pain [Recovering/Resolving]
